FAERS Safety Report 7586156-0 (Version None)
Quarter: 2011Q2

REPORT INFORMATION
  Report Type: 
  Country: None (occurrence: None)
  Receive Date: 20110603
  Receipt Date: 20100603
  Transmission Date: 20111010
  Serious: Yes (Life-Threatening, Other)
  Sender: FDA-Public Use
  Company Number: CTI_01193_2010

PATIENT
  Sex: Female
  Weight: 56.246 kg

DRUGS (4)
  1. PRILOSEC [Concomitant]
  2. FACTIVE [Suspect]
     Indication: BRONCHITIS
     Dosage: (320 UG QD, FOR FIVE DAYS ORAL)
     Route: 048
     Dates: start: 20100430, end: 20100430
  3. FACTIVE [Suspect]
     Indication: CHRONIC OBSTRUCTIVE PULMONARY DISEASE
     Dosage: (320 UG QD, FOR FIVE DAYS ORAL)
     Route: 048
     Dates: start: 20100430, end: 20100430
  4. AMBIEN [Concomitant]

REACTIONS (2)
  - DYSPNOEA [None]
  - URTICARIA [None]
